FAERS Safety Report 13982998 (Version 2)
Quarter: 2017Q4

REPORT INFORMATION
  Report Type: Spontaneous
  Country: FR (occurrence: FR)
  Receive Date: 20170918
  Receipt Date: 20171018
  Transmission Date: 20180321
  Serious: Yes (Other)
  Sender: FDA-Public Use
  Company Number: FR-MERCK KGAA-2026650

PATIENT
  Age: 59 Year
  Sex: Female

DRUGS (4)
  1. NOVOTHYROX [Suspect]
     Active Substance: LEVOTHYROXINE SODIUM
     Route: 048
     Dates: start: 20170715
  2. MIANSERINE [Concomitant]
     Active Substance: MIANSERIN HYDROCHLORIDE
     Route: 065
  3. NOVOTHYROX [Suspect]
     Active Substance: LEVOTHYROXINE SODIUM
     Indication: PRODUCT USED FOR UNKNOWN INDICATION
     Route: 048
     Dates: start: 20170715
  4. CANDESARTAN. [Concomitant]
     Active Substance: CANDESARTAN
     Route: 065

REACTIONS (11)
  - Tachycardia [Not Recovered/Not Resolved]
  - Headache [Not Recovered/Not Resolved]
  - Tinnitus [Not Recovered/Not Resolved]
  - Arthralgia [Not Recovered/Not Resolved]
  - Product formulation issue [Not Recovered/Not Resolved]
  - Depression [Not Recovered/Not Resolved]
  - Fatigue [Not Recovered/Not Resolved]
  - Nervousness [Not Recovered/Not Resolved]
  - Chest pain [Recovering/Resolving]
  - Pain in extremity [Recovered/Resolved]
  - Pain in extremity [Not Recovered/Not Resolved]

NARRATIVE: CASE EVENT DATE: 2017
